FAERS Safety Report 7402291-1 (Version None)
Quarter: 2011Q2

REPORT INFORMATION
  Report Type: 
  Country: None (occurrence: None)
  Receive Date: 20110408
  Receipt Date: 20110329
  Transmission Date: 20111010
  Serious: Yes (Hospitalization)
  Sender: FDA-Public Use
  Company Number: US-US-EMD SERONO, INC.-7050858

PATIENT
  Sex: Female

DRUGS (11)
  1. REBIF [Suspect]
     Route: 058
     Dates: start: 20100917
  2. PERCOCET [Concomitant]
  3. REBIF [Suspect]
     Indication: MULTIPLE SCLEROSIS
     Route: 058
     Dates: start: 20080101, end: 20090101
  4. BACLOFEN [Concomitant]
  5. ZOCOR [Concomitant]
  6. ZANAFLEX [Concomitant]
  7. TOPRAMAX [Concomitant]
  8. TEGRETOL [Concomitant]
  9. VALIUM [Concomitant]
  10. PRILOSEC [Concomitant]
  11. ZOLOFT [Concomitant]

REACTIONS (6)
  - ABSCESS ORAL [None]
  - INJECTION SITE PAIN [None]
  - TOOTH DISORDER [None]
  - INJECTION SITE ERYTHEMA [None]
  - ARTHRITIS [None]
  - CARTILAGE INJURY [None]
